FAERS Safety Report 5030438-3 (Version None)
Quarter: 2006Q2

REPORT INFORMATION
  Report Type: 
  Country: None (occurrence: None)
  Receive Date: 20060614
  Receipt Date: 20060601
  Transmission Date: 20061013
  Serious: Yes (Hospitalization, Other)
  Sender: FDA-Public Use
  Company Number: 2006071823

PATIENT
  Sex: 0

DRUGS (3)
  1. VFEND [Suspect]
     Indication: ASPERGILLOSIS
     Dosage: SEE IMAGE
     Route: 042
  2. VFEND [Suspect]
     Indication: ASPERGILLOSIS
     Dosage: ORAL
     Route: 048
  3. CYTARABINE [Suspect]
     Indication: LEUKAEMIA

REACTIONS (7)
  - ASPERGILLOSIS [None]
  - DISEASE RECURRENCE [None]
  - DRUG INTERACTION [None]
  - NERVOUS SYSTEM DISORDER [None]
  - NEUTROPENIA [None]
  - PERONEAL NERVE PALSY [None]
  - PHARMACEUTICAL PRODUCT COMPLAINT [None]
